FAERS Safety Report 4721495-X (Version None)
Quarter: 2005Q3

REPORT INFORMATION
  Report Type: 
  Country: None (occurrence: None)
  Receive Date: 20050721
  Receipt Date: 20041018
  Transmission Date: 20060218
  Serious: No
  Sender: FDA-Public Use
  Company Number: US-BRISTOL-MYERS SQUIBB COMPANY-12735171

PATIENT
  Age: 79 Year
  Sex: Female
  Weight: 68 kg

DRUGS (7)
  1. COUMADIN [Suspect]
     Indication: ARRHYTHMIA
     Route: 048
  2. COUMADIN [Suspect]
     Indication: ANEURYSM
     Route: 048
  3. AVALIDE [Concomitant]
  4. FORADIL [Concomitant]
  5. ASTELIN [Concomitant]
  6. SYNTHROID [Concomitant]
  7. SINGULAIR [Concomitant]

REACTIONS (1)
  - INTERNATIONAL NORMALISED RATIO FLUCTUATION [None]
